FAERS Safety Report 16813457 (Version 3)
Quarter: 2019Q3

REPORT INFORMATION
  Report Type: Spontaneous
  Country: FR (occurrence: FR)
  Receive Date: 20190917
  Receipt Date: 20190924
  Transmission Date: 20191005
  Serious: Yes (Hospitalization)
  Sender: FDA-Public Use
  Company Number: PHHY2019FR210556

PATIENT
  Age: 14 Year
  Sex: Male
  Weight: 94 kg

DRUGS (9)
  1. IBUPROFEN. [Suspect]
     Active Substance: IBUPROFEN
     Indication: INTENTIONAL OVERDOSE
     Dosage: 4400 MG, UNK (IN TOTAL)
     Route: 048
     Dates: start: 20190210, end: 20190210
  2. PARACETAMOL [Suspect]
     Active Substance: ACETAMINOPHEN
     Indication: INTENTIONAL OVERDOSE
     Dosage: 2 G, UNK (IN TOTAL)
     Route: 048
     Dates: start: 20190210, end: 20190210
  3. DIANE (CYPROTERONE ACETATE\ETHINYL ESTRADIOL) [Suspect]
     Active Substance: CYPROTERONE ACETATE\ETHINYL ESTRADIOL
     Indication: INTENTIONAL OVERDOSE
     Dosage: 21 DF, UNK (IN TOTAL)
     Route: 048
     Dates: start: 20190210, end: 20190210
  4. DIAZEPAM. [Suspect]
     Active Substance: DIAZEPAM
     Indication: INTENTIONAL OVERDOSE
     Dosage: 480 MG, UNK (IN TOTAL)
     Route: 048
     Dates: start: 20190210, end: 20190210
  5. DONORMYL (DOXYLAMINE SUCCINATE\SODIUM PHOSPHATE DIBASIC\SODIUM BROMIDE\SODIUM SULFATE) [Suspect]
     Active Substance: DOXYLAMINE\SODIUM BROMIDE\SODIUM PHOSPHATE, DIBASIC, ANHYDROUS\SODIUM SULFATE
     Indication: INTENTIONAL OVERDOSE
     Dosage: 300 MG, UNK (IN TOTAL)
     Route: 048
     Dates: start: 20190210, end: 20190210
  6. COLCHICINE. [Suspect]
     Active Substance: COLCHICINE
     Indication: INTENTIONAL OVERDOSE
     Dosage: 6 MG, UNK (IN TOTAL)
     Route: 048
     Dates: start: 20190210, end: 20190210
  7. DICLOFENAC [Suspect]
     Active Substance: DICLOFENAC
     Indication: INTENTIONAL OVERDOSE
     Dosage: 5000 MG, UNK (IN TOTAL)
     Route: 048
     Dates: start: 20190210, end: 20190210
  8. ESCITALOPRAM [Suspect]
     Active Substance: ESCITALOPRAM OXALATE
     Indication: INTENTIONAL OVERDOSE
     Dosage: 820 MG, UNK (IN TOTAL)
     Route: 048
     Dates: start: 20190210, end: 20190210
  9. CIALIS [Suspect]
     Active Substance: TADALAFIL
     Indication: INTENTIONAL OVERDOSE
     Dosage: 40 MG, UNK (IN TOTAL)
     Route: 048
     Dates: start: 20190210, end: 20190210

REACTIONS (3)
  - Hypotension [Recovered/Resolved]
  - Diarrhoea [Recovered/Resolved]
  - Malaise [Recovered/Resolved]

NARRATIVE: CASE EVENT DATE: 20190211
